FAERS Safety Report 8593561 (Version 2)
Quarter: 2014Q1

REPORT INFORMATION
  Report Type: Spontaneous
  Country: US (occurrence: US)
  Receive Date: 20120604
  Receipt Date: 20140128
  Transmission Date: 20141002
  Serious: Yes (Hospitalization, Disabling)
  Sender: FDA-Public Use
  Company Number: US-ASTRAZENECA-2012SE34678

PATIENT
  Age: 59 Year
  Sex: Male

DRUGS (5)
  1. NEXIUM [Suspect]
     Indication: GASTROOESOPHAGEAL REFLUX DISEASE
     Route: 048
     Dates: start: 2003
  2. ZANTAC [Concomitant]
  3. HIGH BLOOD PRESSURE MEDICATION [Concomitant]
     Dosage: DAILY
  4. IBUPROFEN [Concomitant]
     Dosage: AS NEEDED
  5. VITAMIN D3 [Concomitant]
     Dosage: DAILY

REACTIONS (8)
  - Back injury [Unknown]
  - Pneumonia [Unknown]
  - Umbilical hernia [Unknown]
  - Osteoporosis [Unknown]
  - Multiple fractures [Unknown]
  - Vitamin D deficiency [Unknown]
  - Calcium deficiency [Unknown]
  - Bone disorder [Unknown]
